FAERS Safety Report 11749370 (Version 1)
Quarter: 2015Q4

REPORT INFORMATION
  Report Type: Report from Study
  Country: US (occurrence: US)
  Receive Date: 20151118
  Receipt Date: 20151118
  Transmission Date: 20160304
  Serious: Yes (Other)
  Sender: FDA-Public Use
  Company Number: PHEH2015US023832

PATIENT
  Sex: Female

DRUGS (1)
  1. TOBI PODHALER [Suspect]
     Active Substance: TOBRAMYCIN
     Indication: CYSTIC FIBROSIS
     Dosage: 4 DF, TWICE DAILY FOR 28 DAYS ON AND 28 DAYS OFF
     Route: 055
     Dates: end: 201507

REACTIONS (2)
  - Pulmonary haemorrhage [Unknown]
  - Vascular injury [Unknown]
